FAERS Safety Report 9108571 (Version 1)
Quarter: 2013Q1

REPORT INFORMATION
  Report Type: Spontaneous
  Country: US (occurrence: US)
  Receive Date: 20130222
  Receipt Date: 20130222
  Transmission Date: 20140127
  Serious: Yes (Death)
  Sender: FDA-Public Use
  Company Number: US-UCBSA-078377

PATIENT
  Age: 83 Year
  Sex: Male

DRUGS (1)
  1. CIMZIA [Suspect]
     Indication: CROHN^S DISEASE
     Dosage: 200 MG KIT
     Route: 058
     Dates: start: 20110311, end: 20130110

REACTIONS (1)
  - Death [Fatal]
